FAERS Safety Report 15998232 (Version 1)
Quarter: 2019Q1

REPORT INFORMATION
  Report Type: Spontaneous
  Country: ZA (occurrence: ZA)
  Receive Date: 20190223
  Receipt Date: 20190223
  Transmission Date: 20190418
  Serious: Yes (Hospitalization, Other)
  Sender: FDA-Public Use
  Company Number: ZA-AMGEN-ZAFSP2019008291

PATIENT
  Age: 58 Year
  Sex: Female

DRUGS (2)
  1. ENBREL [Suspect]
     Active Substance: ETANERCEPT
     Indication: RHEUMATOID ARTHRITIS
     Dosage: 50 MG, QWK
     Route: 058
     Dates: start: 20180110, end: 20190116
  2. PURBAC [Concomitant]
     Active Substance: SULFAMETHOXAZOLE\TRIMETHOPRIM
     Dosage: 1920 MG, DAILY(480 MG 4 TIMES A DAY)
     Dates: start: 20190119

REACTIONS (10)
  - Pruritus [Recovered/Resolved]
  - Somnolence [Recovered/Resolved]
  - Acne [Recovered/Resolved]
  - Furuncle [Recovered/Resolved]
  - Fatigue [Recovered/Resolved]
  - Injection site pustule [Recovered/Resolved]
  - Injection site haemorrhage [Recovered/Resolved]
  - Chest discomfort [Recovered/Resolved]
  - Injection site mass [Recovered/Resolved]
  - Injection site erythema [Recovered/Resolved]
